FAERS Safety Report 6586761-4 (Version None)
Quarter: 2010Q1

REPORT INFORMATION
  Report Type: 
  Country: None (occurrence: None)
  Receive Date: 20100217
  Receipt Date: 20090715
  Transmission Date: 20100710
  Serious: No
  Sender: FDA-Public Use
  Company Number: US-ALLERGAN-0909911US

PATIENT
  Age: 60 Year
  Sex: Male

DRUGS (3)
  1. BOTOX [Suspect]
     Indication: MUSCLE SPASMS
     Dosage: 30 UNITS, SINGLE
     Route: 030
     Dates: start: 20090508, end: 20090508
  2. BOTOX [Suspect]
     Indication: PAIN
  3. BOTOX [Suspect]
     Indication: MYELOPATHY

REACTIONS (1)
  - MONOPLEGIA [None]
